FAERS Safety Report 25667899 (Version 1)
Quarter: 2025Q3

REPORT INFORMATION
  Report Type: Spontaneous
  Country: US (occurrence: US)
  Receive Date: 20250812
  Receipt Date: 20250812
  Transmission Date: 20251020
  Serious: No
  Sender: ENDO
  Company Number: US-ENDO USA, INC.-2024-050293

PATIENT
  Sex: Male

DRUGS (6)
  1. TESTOPEL [Suspect]
     Active Substance: TESTOSTERONE
     Indication: Product used for unknown indication
     Route: 065
     Dates: start: 20221227
  2. TESTOPEL [Suspect]
     Active Substance: TESTOSTERONE
     Indication: Product used for unknown indication
     Route: 065
     Dates: start: 20221227
  3. TESTOPEL [Suspect]
     Active Substance: TESTOSTERONE
     Indication: Product used for unknown indication
     Route: 065
     Dates: start: 20221227
  4. TESTOPEL [Suspect]
     Active Substance: TESTOSTERONE
     Route: 065
     Dates: start: 20240722
  5. TESTOPEL [Suspect]
     Active Substance: TESTOSTERONE
     Route: 065
     Dates: start: 20240722
  6. TESTOPEL [Suspect]
     Active Substance: TESTOSTERONE
     Route: 065
     Dates: start: 20240722

REACTIONS (2)
  - Blood testosterone decreased [Unknown]
  - Drug effect less than expected [Unknown]
